FAERS Safety Report 6852628-7 (Version None)
Quarter: 2010Q3

REPORT INFORMATION
  Report Type: 
  Country: None (occurrence: None)
  Receive Date: 20100717
  Receipt Date: 20080211
  Transmission Date: 20110219
  Serious: No
  Sender: FDA-Public Use
  Company Number: US-PFIZER INC-2007097109

PATIENT
  Sex: Female
  Weight: 54.5 kg

DRUGS (5)
  1. CHANTIX [Suspect]
     Indication: SMOKING CESSATION THERAPY
     Route: 048
     Dates: start: 20070913, end: 20080131
  2. ZANTAC [Interacting]
     Route: 048
  3. BACTRIM [Interacting]
     Indication: ULCER
     Route: 048
     Dates: start: 20071102
  4. ESTRIOL [Concomitant]
  5. SYNTHROID [Concomitant]

REACTIONS (6)
  - ABDOMINAL DISCOMFORT [None]
  - DRUG INTERACTION [None]
  - DRUG INTOLERANCE [None]
  - FREQUENT BOWEL MOVEMENTS [None]
  - NAUSEA [None]
  - VOMITING [None]
